FAERS Safety Report 8116887-5 (Version None)
Quarter: 2012Q1

REPORT INFORMATION
  Report Type: 
  Country: None (occurrence: None)
  Receive Date: 20120206
  Receipt Date: 20120131
  Transmission Date: 20120608
  Serious: Yes (Other)
  Sender: FDA-Public Use
  Company Number: PHHY2011CA115075

PATIENT
  Age: 34 Year
  Sex: Female

DRUGS (4)
  1. BENADRYL [Concomitant]
  2. REMICADE [Concomitant]
  3. METHYLPREDNISOLONE SODIUM SUCCINATE [Suspect]
     Dosage: UNK UKN, UNK
  4. METHYLPREDNISOLONE [Suspect]
     Indication: PREMEDICATION
     Dosage: 100 MG, UNK
     Route: 042

REACTIONS (7)
  - PRURITUS [None]
  - OEDEMA PERIPHERAL [None]
  - WRONG DRUG ADMINISTERED [None]
  - FLUSHING [None]
  - EYELID OEDEMA [None]
  - SWELLING FACE [None]
  - NAUSEA [None]
